FAERS Safety Report 7079574-0 (Version None)
Quarter: 2010Q4

REPORT INFORMATION
  Report Type: 
  Country: None (occurrence: None)
  Receive Date: 20101022
  Receipt Date: 20101006
  Transmission Date: 20110411
  Serious: Yes (Death)
  Sender: FDA-Public Use
  Company Number: 2010004365

PATIENT
  Age: 55 Year
  Sex: Female

DRUGS (8)
  1. ERLOTINIB (ERLOTINIB) (TABLET) (ERLOTINIB) [Suspect]
     Indication: LUNG ADENOCARCINOMA
     Dosage: 150 MG, QD, ORAL
     Route: 048
     Dates: start: 20090826, end: 20100606
  2. METHYCOBAL (MECOBALAMIN) [Concomitant]
  3. CINAL (CINAL) [Concomitant]
  4. LANSOPRAZOLE [Concomitant]
  5. BIFIDOBACTERIUM [Concomitant]
  6. DICLOFENAC SODIUM [Concomitant]
  7. SELBEX (TEPRENONE) [Concomitant]
  8. LENDORM [Concomitant]

REACTIONS (1)
  - CARDIO-RESPIRATORY ARREST [None]
